FAERS Safety Report 9698506 (Version 7)
Quarter: 2014Q2

REPORT INFORMATION
  Report Type: Report from Study
  Country: US (occurrence: US)
  Receive Date: 20131120
  Receipt Date: 20140519
  Transmission Date: 20141212
  Serious: Yes (Hospitalization)
  Sender: FDA-Public Use
  Company Number: US-ACTELION-A-US2013-91026

PATIENT
  Age: 40 Year
  Sex: Female

DRUGS (4)
  1. TRACLEER [Suspect]
     Indication: PULMONARY ARTERIAL HYPERTENSION
     Dosage: 125 MG, BID
     Route: 048
     Dates: start: 201306
  2. TRACLEER [Suspect]
     Dosage: 62.5 MG, BID
     Route: 048
     Dates: start: 201305, end: 201306
  3. REMODULIN [Concomitant]
  4. OXYGEN [Concomitant]

REACTIONS (10)
  - Cellulitis [Recovering/Resolving]
  - Peripheral swelling [Recovering/Resolving]
  - Rash [Recovering/Resolving]
  - Erythema [Recovering/Resolving]
  - Pruritus [Recovering/Resolving]
  - Blood culture negative [Recovering/Resolving]
  - Headache [Unknown]
  - Limb discomfort [Unknown]
  - Skin discolouration [Unknown]
  - Infusion site pain [Unknown]
